FAERS Safety Report 9676886 (Version 4)
Quarter: 2013Q4

REPORT INFORMATION
  Report Type: Report from Study
  Country: CO (occurrence: CO)
  Receive Date: 20131107
  Receipt Date: 20131203
  Transmission Date: 20140711
  Serious: Yes (Other)
  Sender: FDA-Public Use
  Company Number: CO-US-EMD SERONO, INC.-7247399

PATIENT
  Age: 33 Year
  Sex: Female
  Weight: 42 kg

DRUGS (2)
  1. REBIF [Suspect]
     Indication: MULTIPLE SCLEROSIS
     Route: 058
     Dates: start: 20130906, end: 20131025
  2. REBIF [Suspect]
     Route: 058
     Dates: start: 20131106

REACTIONS (5)
  - Uterine haemorrhage [Recovered/Resolved]
  - Abortion induced [Unknown]
  - Generalised oedema [Recovered/Resolved]
  - Tachycardia [Recovered/Resolved]
  - Maternal exposure timing unspecified [Recovered/Resolved]
